FAERS Safety Report 20946489 (Version 1)
Quarter: 2022Q2

REPORT INFORMATION
  Report Type: Spontaneous
  Country: US (occurrence: US)
  Receive Date: 20220610
  Receipt Date: 20220610
  Transmission Date: 20220721
  Serious: Yes (Death, Other)
  Sender: FDA-Public Use
  Company Number: US-ASTELLAS-2022US020715

PATIENT
  Sex: Male

DRUGS (1)
  1. PADCEV [Suspect]
     Active Substance: ENFORTUMAB VEDOTIN-EJFV
     Indication: Transitional cell carcinoma
     Dosage: UNK, UNKNOWN FREQ.
     Route: 065

REACTIONS (7)
  - Stevens-Johnson syndrome [Fatal]
  - Hepatic cirrhosis [Unknown]
  - Diabetic ketoacidosis [Unknown]
  - Asthenia [Unknown]
  - Muscle disorder [Unknown]
  - Diarrhoea [Unknown]
  - Insulin resistance [Unknown]
